FAERS Safety Report 5420530-3 (Version None)
Quarter: 2007Q3

REPORT INFORMATION
  Report Type: 
  Country: None (occurrence: None)
  Receive Date: 20070821
  Receipt Date: 20070117
  Transmission Date: 20080115
  Serious: No
  Sender: FDA-Public Use
  Company Number: US-KINGPHARMUSA00001-K200700055

PATIENT

DRUGS (1)
  1. CYTOMEL [Suspect]
     Dosage: 5 MCG, UNK
     Route: 048

REACTIONS (1)
  - INSOMNIA [None]
